FAERS Safety Report 5425539-1 (Version None)
Quarter: 2007Q3

REPORT INFORMATION
  Report Type: 
  Country: None (occurrence: None)
  Receive Date: 20070824
  Receipt Date: 20070815
  Transmission Date: 20080115
  Serious: Yes (Death, Other)
  Sender: FDA-Public Use
  Company Number: US-PFIZER INC-2007050890

PATIENT
  Sex: Male

DRUGS (1)
  1. CELEBREX [Suspect]
     Indication: PAIN MANAGEMENT
     Route: 048

REACTIONS (5)
  - BLOOD URINE PRESENT [None]
  - CARDIOVASCULAR DISORDER [None]
  - CONVULSION [None]
  - DIZZINESS [None]
  - FALL [None]
